FAERS Safety Report 9708125 (Version 2)
Quarter: 2013Q4

REPORT INFORMATION
  Report Type: Spontaneous
  Country: US (occurrence: US)
  Receive Date: 20131125
  Receipt Date: 20131127
  Transmission Date: 20140711
  Serious: No
  Sender: FDA-Public Use
  Company Number: US-BAXTER-2013BAX045664

PATIENT
  Age: 17 Year
  Sex: Female
  Weight: 52.21 kg

DRUGS (3)
  1. GAMMAGARD LIQUID [Suspect]
     Indication: HYPOGAMMAGLOBULINAEMIA
     Route: 058
     Dates: start: 20131116, end: 20131116
  2. GAMMAGARD LIQUID [Suspect]
     Route: 058
     Dates: start: 20131109, end: 20131109
  3. GAMMAGARD LIQUID [Suspect]
     Route: 065
     Dates: start: 201310

REACTIONS (2)
  - Contusion [Not Recovered/Not Resolved]
  - Contusion [Not Recovered/Not Resolved]
